FAERS Safety Report 18937103 (Version 3)
Quarter: 2021Q2

REPORT INFORMATION
  Report Type: Report from Study
  Country: US (occurrence: US)
  Receive Date: 20210224
  Receipt Date: 20210419
  Transmission Date: 20210717
  Serious: No
  Sender: FDA-Public Use
  Company Number: NVSC2021US038703

PATIENT
  Age: 60 Year
  Sex: Female

DRUGS (1)
  1. COSENTYX [Suspect]
     Active Substance: SECUKINUMAB
     Indication: PSORIASIS
     Dosage: UNK UNK, UNKNOWN
     Route: 058
     Dates: start: 20210214

REACTIONS (5)
  - Inflammation [Unknown]
  - Drug ineffective [Unknown]
  - Tenderness [Unknown]
  - Erythema [Not Recovered/Not Resolved]
  - Skin depigmentation [Unknown]
